FAERS Safety Report 23920746 (Version 1)
Quarter: 2024Q2

REPORT INFORMATION
  Report Type: Spontaneous
  Country: US (occurrence: None)
  Receive Date: 20240524
  Receipt Date: 20240524
  Transmission Date: 20240716
  Serious: No
  Sender: FDA-Public Use
  Company Number: None

PATIENT

DRUGS (2)
  1. AZTREONAM [Suspect]
     Active Substance: AZTREONAM
  2. INSULIN NOS [Suspect]
     Active Substance: INSULIN NOS

REACTIONS (5)
  - Wrong technique in product usage process [None]
  - Product preparation error [None]
  - Drug administered in wrong device [None]
  - Blood glucose decreased [None]
  - Drug monitoring procedure not performed [None]
